FAERS Safety Report 25795532 (Version 1)
Quarter: 2025Q3

REPORT INFORMATION
  Report Type: Spontaneous
  Country: US (occurrence: US)
  Receive Date: 20250912
  Receipt Date: 20250912
  Transmission Date: 20251020
  Serious: Yes (Life-Threatening, Hospitalization)
  Sender: MYLAN
  Company Number: US-MYLANLABS-2025M1077077

PATIENT
  Age: 57 Year
  Sex: Female

DRUGS (12)
  1. APIXABAN [Suspect]
     Active Substance: APIXABAN
     Indication: Anticoagulant therapy
  2. APIXABAN [Suspect]
     Active Substance: APIXABAN
     Indication: Peripheral artery stenosis
     Route: 065
  3. APIXABAN [Suspect]
     Active Substance: APIXABAN
     Route: 065
  4. APIXABAN [Suspect]
     Active Substance: APIXABAN
  5. HEPARIN [Suspect]
     Active Substance: HEPARIN SODIUM
     Indication: Anticoagulant therapy
  6. HEPARIN [Suspect]
     Active Substance: HEPARIN SODIUM
     Indication: Peripheral artery stenosis
     Route: 042
  7. HEPARIN [Suspect]
     Active Substance: HEPARIN SODIUM
     Route: 042
  8. HEPARIN [Suspect]
     Active Substance: HEPARIN SODIUM
  9. HEPARIN [Suspect]
     Active Substance: HEPARIN SODIUM
     Indication: Anticoagulant therapy
  10. HEPARIN [Suspect]
     Active Substance: HEPARIN SODIUM
     Indication: Peripheral artery stenosis
     Route: 065
  11. HEPARIN [Suspect]
     Active Substance: HEPARIN SODIUM
     Route: 065
  12. HEPARIN [Suspect]
     Active Substance: HEPARIN SODIUM

REACTIONS (3)
  - Pericardial haemorrhage [Recovering/Resolving]
  - Cardiac tamponade [Recovering/Resolving]
  - Hypotension [Recovered/Resolved]
